FAERS Safety Report 5199056-0 (Version None)
Quarter: 2006Q4

REPORT INFORMATION
  Report Type: 
  Country: None (occurrence: None)
  Receive Date: 20060919
  Receipt Date: 20060627
  Transmission Date: 20070319
  Serious: Yes (Other)
  Sender: FDA-Public Use
  Company Number: HQWYE527330JUN06

PATIENT
  Age: 37 Year
  Sex: Female
  Weight: 89.89 kg

DRUGS (1)
  1. ADVIL MIGRAINE LIQUI-GELS [Suspect]
     Indication: MIGRAINE
     Dosage: 2 CAPSULES AS NEEDED, ORAL
     Route: 048
     Dates: start: 20060601

REACTIONS (1)
  - ODYNOPHAGIA [None]
